FAERS Safety Report 17557898 (Version 3)
Quarter: 2020Q2

REPORT INFORMATION
  Report Type: Spontaneous
  Country: US (occurrence: US)
  Receive Date: 20200318
  Receipt Date: 20200408
  Transmission Date: 20200713
  Serious: No
  Sender: FDA-Public Use
  Company Number: US-PFIZER INC-2020118033

PATIENT
  Age: 83 Year
  Sex: Male

DRUGS (1)
  1. INLYTA [Suspect]
     Active Substance: AXITINIB
     Indication: CLEAR CELL RENAL CELL CARCINOMA
     Dosage: 5 MG, UNK

REACTIONS (2)
  - Neoplasm progression [Unknown]
  - Hypoacusis [Unknown]

NARRATIVE: CASE EVENT DATE: 201901
